FAERS Safety Report 12058424 (Version 1)
Quarter: 2016Q1

REPORT INFORMATION
  Report Type: Spontaneous
  Country: US (occurrence: None)
  Receive Date: 20160209
  Receipt Date: 20160209
  Transmission Date: 20160526
  Serious: Yes (Death, Hospitalization)
  Sender: FDA-Public Use
  Company Number: None

PATIENT
  Age: 63 Year
  Sex: Male
  Weight: 75.21 kg

DRUGS (3)
  1. BEVACIZUMAB (RHUMAB VEGF) [Suspect]
     Active Substance: BEVACIZUMAB
     Dates: end: 20130321
  2. CARBOPLATIN. [Suspect]
     Active Substance: CARBOPLATIN
     Dates: end: 20130321
  3. TAXOL [Suspect]
     Active Substance: PACLITAXEL
     Dates: end: 20130321

REACTIONS (8)
  - Neuropathy peripheral [None]
  - Anaemia [None]
  - Granulocytosis [None]
  - Fatigue [None]
  - Leukocytosis [None]
  - Haematemesis [None]
  - Wrong drug administered [None]
  - Cough [None]

NARRATIVE: CASE EVENT DATE: 20130423
